FAERS Safety Report 5983249-6 (Version None)
Quarter: 2008Q4

REPORT INFORMATION
  Report Type: 
  Country: None (occurrence: None)
  Receive Date: 20081208
  Receipt Date: 20080814
  Transmission Date: 20090506
  Serious: No
  Sender: FDA-Public Use
  Company Number: US-BAYER-200812454BCC

PATIENT
  Age: 70 Year
  Sex: Female
  Weight: 47 kg

DRUGS (4)
  1. ALEVE [Suspect]
     Indication: NASAL CONGESTION
     Dosage: TOTAL DAILY DOSE: 0.5 DF  UNIT DOSE: 1 DF
     Route: 048
     Dates: start: 20080524
  2. ALEVE [Suspect]
     Dosage: TOTAL DAILY DOSE: 0.5 DF  UNIT DOSE: 1 DF
     Route: 048
     Dates: start: 20080526
  3. AMITRIPTYLINE HCL [Concomitant]
  4. HORMONE PILL [Concomitant]

REACTIONS (1)
  - SOMNOLENCE [None]
